FAERS Safety Report 6596493-4 (Version None)
Quarter: 2010Q1

REPORT INFORMATION
  Report Type: 
  Country: None (occurrence: None)
  Receive Date: 20100222
  Receipt Date: 20100222
  Transmission Date: 20100710
  Serious: Yes (Hospitalization)
  Sender: FDA-Public Use
  Company Number: None

PATIENT
  Age: 85 Year
  Sex: Male

DRUGS (1)
  1. TERAZOSIN HCL [Suspect]
     Indication: HYPOTENSION
     Dosage: 4 MG HS
     Dates: start: 20080915, end: 20100215

REACTIONS (3)
  - FALL [None]
  - HIP FRACTURE [None]
  - HYPOTENSION [None]
